FAERS Safety Report 7675100-3 (Version None)
Quarter: 2011Q3

REPORT INFORMATION
  Report Type: 
  Country: None (occurrence: None)
  Receive Date: 20110810
  Receipt Date: 20110808
  Transmission Date: 20111222
  Serious: Yes (Hospitalization)
  Sender: FDA-Public Use
  Company Number: US-MERCK-1107USA02617

PATIENT
  Age: 67 Year
  Sex: Male

DRUGS (4)
  1. ENALAPRIL MALEATE [Concomitant]
     Route: 065
  2. JANUVIA [Suspect]
     Indication: DIABETES MELLITUS
     Route: 048
     Dates: start: 20110117, end: 20110223
  3. METFORMIN [Concomitant]
     Route: 065
  4. GLIPIZIDE [Concomitant]
     Route: 065

REACTIONS (3)
  - HYPOTENSION [None]
  - OVERDOSE [None]
  - PANCREATITIS [None]
